FAERS Safety Report 9803517 (Version 1)
Quarter: 2014Q1

REPORT INFORMATION
  Report Type: Spontaneous
  Country: US (occurrence: US)
  Receive Date: 20140108
  Receipt Date: 20140108
  Transmission Date: 20141002
  Serious: Yes (Death)
  Sender: FDA-Public Use
  Company Number: US-BAYER-2014-003079

PATIENT
  Age: 37 Year
  Sex: Male

DRUGS (6)
  1. DIPHENHYDRAMINE HYDROCHLORIDE [Suspect]
     Route: 048
  2. MORPHINE [Suspect]
     Route: 048
  3. OXYCODONE [Suspect]
     Route: 048
  4. CYCLOBENZAPRINE [Suspect]
     Route: 048
  5. NORTRIPTYLINE [Suspect]
     Route: 048
  6. ACETAMINOPHEN [Suspect]
     Route: 048

REACTIONS (1)
  - Toxicity to various agents [Fatal]
